FAERS Safety Report 16031104 (Version 11)
Quarter: 2020Q4

REPORT INFORMATION
  Report Type: Spontaneous
  Country: IT (occurrence: IT)
  Receive Date: 20190304
  Receipt Date: 20201104
  Transmission Date: 20210113
  Serious: Yes (Death, Other)
  Sender: FDA-Public Use
  Company Number: IT-VALIDUS PHARMACEUTICALS LLC-IT-2019VAL000063

PATIENT

DRUGS (39)
  1. CALCITRIOL. [Suspect]
     Active Substance: CALCITRIOL
     Indication: PRODUCT USED FOR UNKNOWN INDICATION
     Dosage: 0.5 ?G AT 08.00 HOURS
     Route: 065
     Dates: start: 20020927, end: 20021106
  2. BETAMETHASONE. [Suspect]
     Active Substance: BETAMETHASONE
     Dosage: 8 MG, UNK
     Route: 042
     Dates: start: 20021106, end: 20021110
  3. AMOXICILLIN W/CLAVULANIC ACID [Suspect]
     Active Substance: AMOXICILLIN\CLAVULANIC ACID
     Indication: PNEUMONIA
     Dosage: 1200 MG, TID
     Route: 042
     Dates: start: 20021004
  4. CALCIUM CARBONATE. [Suspect]
     Active Substance: CALCIUM CARBONATE
     Indication: PRODUCT USED FOR UNKNOWN INDICATION
     Dosage: 1 G, QD
     Route: 065
     Dates: start: 20020927, end: 20020927
  5. GENTAMICIN. [Concomitant]
     Active Substance: GENTAMICIN
     Indication: PRODUCT USED FOR UNKNOWN INDICATION
     Dosage: UNK
     Dates: start: 20021106, end: 20021110
  6. FUROSEMIDE. [Suspect]
     Active Substance: FUROSEMIDE
     Dosage: DOSE AS USED: UNK
     Route: 042
     Dates: start: 20021027, end: 20021106
  7. POTASSIUM CANRENOATE [Suspect]
     Active Substance: CANRENOATE POTASSIUM
     Indication: AGITATION
     Dosage: DOSE AS USED
     Route: 048
     Dates: start: 20021004
  8. CANRENOIC ACID [Suspect]
     Active Substance: CANRENOIC ACID
     Indication: RENAL IMPAIRMENT
     Dosage: UNK
     Route: 048
     Dates: start: 20021004, end: 20021015
  9. HYDROCORTISONE HEMISUCCINATE [Concomitant]
     Active Substance: HYDROCORTISONE HEMISUCCINATE
     Indication: PRODUCT USED FOR UNKNOWN INDICATION
     Dosage: UNK
     Dates: start: 20021103, end: 20021106
  10. HALOPERIDOL. [Suspect]
     Active Substance: HALOPERIDOL
     Indication: HALLUCINATION
     Dosage: UNK
     Route: 065
     Dates: start: 20021009, end: 20021104
  11. HALOPERIDOL. [Suspect]
     Active Substance: HALOPERIDOL
     Indication: AGITATION
  12. INSULIN [Concomitant]
     Active Substance: INSULIN NOS
     Indication: PRODUCT USED FOR UNKNOWN INDICATION
     Dosage: UNK
     Dates: start: 20021106, end: 20021110
  13. LEVOFLOXACIN. [Suspect]
     Active Substance: LEVOFLOXACIN
     Indication: PNEUMONIA
     Dosage: 500 MG, QD
     Route: 048
     Dates: start: 20021004, end: 20021019
  14. BETAMETHASONE. [Suspect]
     Active Substance: BETAMETHASONE
     Indication: PRODUCT USED FOR UNKNOWN INDICATION
     Dosage: UNK
     Route: 065
     Dates: end: 20020927
  15. ITRACONAZOLE. [Suspect]
     Active Substance: ITRACONAZOLE
     Indication: ORAL CANDIDIASIS
     Dosage: 100 MG, UNK
     Route: 065
     Dates: start: 20021009, end: 20021106
  16. CEFACLOR. [Suspect]
     Active Substance: CEFACLOR
     Indication: CYSTITIS
     Dosage: UNK
     Route: 065
     Dates: end: 20020927
  17. CEFACLOR. [Suspect]
     Active Substance: CEFACLOR
     Indication: ORAL CANDIDIASIS
  18. NYSTATIN. [Suspect]
     Active Substance: NYSTATIN
     Indication: ORAL CANDIDIASIS
  19. CALCIUM LACTOGLUCONATE [Concomitant]
     Active Substance: CALCIUM LACTATE GLUCONATE ANHYDROUS
     Indication: PRODUCT USED FOR UNKNOWN INDICATION
     Dosage: UNK
  20. MAGNESIUM HYDROXIDE. [Concomitant]
     Active Substance: MAGNESIUM HYDROXIDE
     Indication: PRODUCT USED FOR UNKNOWN INDICATION
     Dosage: UNK
     Dates: start: 20020927
  21. GLUCOSE [Concomitant]
     Active Substance: DEXTROSE
     Indication: PRODUCT USED FOR UNKNOWN INDICATION
     Dosage: UNK
     Dates: start: 20021106, end: 20021110
  22. FUROSEMIDE. [Suspect]
     Active Substance: FUROSEMIDE
     Indication: OLIGURIA
     Dosage: UNK
     Route: 048
     Dates: start: 20021004, end: 20021015
  23. DIAZEPAM. [Suspect]
     Active Substance: DIAZEPAM
     Indication: HALLUCINATION
     Dosage: UNK
     Route: 065
     Dates: start: 20021009, end: 20021106
  24. CALCIUM GLUCONATE. [Suspect]
     Active Substance: CALCIUM GLUCONATE
     Indication: PRODUCT USED FOR UNKNOWN INDICATION
     Dosage: 1 G, UNK
     Route: 065
     Dates: start: 20021009, end: 20021110
  25. METOCLOPRAMIDE HYDROCHLORIDE. [Suspect]
     Active Substance: METOCLOPRAMIDE HYDROCHLORIDE
     Indication: PRODUCT USED FOR UNKNOWN INDICATION
     Dosage: UNK
     Route: 065
     Dates: end: 20020927
  26. RANITIDINE. [Concomitant]
     Active Substance: RANITIDINE
     Indication: PRODUCT USED FOR UNKNOWN INDICATION
     Dosage: UNK
     Dates: start: 20021103, end: 20021110
  27. ALUMINUM HYDROXIDE GEL [Concomitant]
     Active Substance: ALGELDRATE
     Indication: PRODUCT USED FOR UNKNOWN INDICATION
     Dosage: UNK
     Dates: start: 20020927, end: 20021106
  28. POVIDONE-IODINE. [Concomitant]
     Active Substance: POVIDONE-IODINE
     Indication: PRODUCT USED FOR UNKNOWN INDICATION
     Dosage: UNK
     Dates: start: 20021106, end: 20021110
  29. PIPERACILLIN. [Concomitant]
     Active Substance: PIPERACILLIN SODIUM
     Indication: PRODUCT USED FOR UNKNOWN INDICATION
     Dosage: UNK
     Dates: start: 20021102, end: 20021104
  30. PANTOPRAZOLE [Suspect]
     Active Substance: PANTOPRAZOLE
     Indication: PROPHYLAXIS
     Dosage: DOSE AS USED
     Route: 048
     Dates: start: 20021009, end: 20021106
  31. RABEPRAZOLE SODIUM. [Suspect]
     Active Substance: RABEPRAZOLE SODIUM
     Indication: PRODUCT USED FOR UNKNOWN INDICATION
     Dosage: UNK
     Route: 065
     Dates: end: 20020927
  32. NYSTATIN. [Suspect]
     Active Substance: NYSTATIN
     Indication: CYSTITIS
     Dosage: 4 ML, TID
     Route: 065
     Dates: start: 20020927, end: 20021009
  33. CORTISONE ACETATE. [Suspect]
     Active Substance: CORTISONE ACETATE
     Indication: PRODUCT USED FOR UNKNOWN INDICATION
     Dosage: 25 MG, BID
     Route: 065
     Dates: start: 20020927, end: 20021103
  34. FLUDROCORTISONE [Suspect]
     Active Substance: FLUDROCORTISONE
     Indication: PRODUCT USED FOR UNKNOWN INDICATION
     Dosage: UNK
     Route: 065
     Dates: start: 20020927, end: 20021024
  35. CHLORPHENAMINE [Concomitant]
     Active Substance: CHLORPHENIRAMINE MALEATE
     Indication: PRODUCT USED FOR UNKNOWN INDICATION
     Dosage: UNK
     Route: 042
     Dates: start: 20021106, end: 20021110
  36. BETAMETHASONE. [Suspect]
     Active Substance: BETAMETHASONE
     Dosage: 6 MG, UNK
     Route: 065
     Dates: start: 20021106
  37. DIAZEPAM. [Suspect]
     Active Substance: DIAZEPAM
     Indication: AGITATION
  38. OMEPRAZOLE. [Suspect]
     Active Substance: OMEPRAZOLE
     Indication: PRODUCT USED FOR UNKNOWN INDICATION
     Dosage: 20 MG, QD
     Route: 048
     Dates: start: 20020927, end: 20021103
  39. RIFAMYCIN [Concomitant]
     Active Substance: RIFAMYCIN
     Indication: PRODUCT USED FOR UNKNOWN INDICATION
     Dosage: UNK
     Dates: start: 20021104, end: 20021106

REACTIONS (17)
  - Rash [Fatal]
  - Rash macular [Fatal]
  - Toxic epidermal necrolysis [Fatal]
  - Septic shock [Fatal]
  - Rash [Fatal]
  - Oliguria [Fatal]
  - Skin exfoliation [Fatal]
  - Respiratory distress [Fatal]
  - Hallucination [Fatal]
  - Skin lesion [Fatal]
  - Staphylococcal sepsis [Fatal]
  - Skin infection [Fatal]
  - Pyrexia [Fatal]
  - Blister [Fatal]
  - Mouth ulceration [Fatal]
  - Agitation [Fatal]
  - Rash erythematous [Fatal]

NARRATIVE: CASE EVENT DATE: 200210
